FAERS Safety Report 8826275 (Version 1)
Quarter: 2012Q4

REPORT INFORMATION
  Report Type: 
  Country: BR (occurrence: BR)
  Receive Date: 20121008
  Receipt Date: 20121008
  Transmission Date: 20130627
  Serious: Yes (Hospitalization)
  Sender: FDA-Public Use
  Company Number: BR-SANOFI-AVENTIS-2012SA071351

PATIENT
  Age: 63 Year
  Sex: Male
  Weight: 90 kg

DRUGS (8)
  1. LANTUS [Suspect]
     Indication: DIABETES
     Route: 058
     Dates: start: 2007
  2. AMLODIPINE [Concomitant]
     Indication: BLOOD PRESSURE
     Route: 048
     Dates: start: 2007
  3. SERMION [Concomitant]
     Indication: DIZZINESS
     Route: 048
     Dates: start: 2012
  4. MECLIZINE HYDROCHLORIDE [Concomitant]
     Indication: DIZZINESS
     Route: 048
     Dates: start: 2012
  5. GARDENAL [Concomitant]
     Indication: DIZZINESS
     Route: 048
     Dates: start: 2012
  6. ENALAPRIL [Concomitant]
     Indication: BLOOD PRESSURE
     Route: 048
     Dates: start: 2011
  7. INSULIN NOVOLIN 70/30 [Concomitant]
     Indication: DIABETES
     Dosage: dose: 4 IU, 6 IU and 4IU
     Route: 058
     Dates: start: 2007
  8. SIMVASTATIN [Concomitant]
     Indication: BLOOD DISORDER NOS
     Route: 048
     Dates: start: 2007

REACTIONS (12)
  - Cerebrovascular accident [Recovered/Resolved]
  - Paralysis [Recovered/Resolved with Sequelae]
  - Speech disorder [Recovering/Resolving]
  - Monoplegia [Recovered/Resolved with Sequelae]
  - Gait disturbance [Recovering/Resolving]
  - Labyrinthitis [Unknown]
  - Dizziness [Not Recovered/Not Resolved]
  - Cerebrovascular accident [Unknown]
  - Memory impairment [Not Recovered/Not Resolved]
  - Skin induration [Unknown]
  - Injection site induration [Unknown]
  - Hyperglycaemia [Not Recovered/Not Resolved]
